FAERS Safety Report 10818568 (Version 1)
Quarter: 2015Q1

REPORT INFORMATION
  Report Type: Spontaneous
  Country: US (occurrence: US)
  Receive Date: 20150218
  Receipt Date: 20150218
  Transmission Date: 20150721
  Serious: No
  Sender: FDA-Public Use
  Company Number: US-ELI_LILLY_AND_COMPANY-US201501008567

PATIENT
  Age: 56 Year
  Sex: Female

DRUGS (5)
  1. OMEGA 3                            /01333901/ [Concomitant]
  2. INSULIN HUMAN [Suspect]
     Active Substance: INSULIN HUMAN
     Indication: DIABETES MELLITUS
     Dosage: 12 U, OTHER
     Route: 065
     Dates: start: 2013
  3. AMILORIDE [Concomitant]
     Active Substance: AMILORIDE
  4. HUMULIN N [Suspect]
     Active Substance: INSULIN HUMAN
     Indication: DIABETES MELLITUS
     Dosage: 18 U, UNK
     Route: 065
     Dates: start: 2013
  5. METOPROLOL [Concomitant]
     Active Substance: METOPROLOL
     Dosage: .75 DF, UNK

REACTIONS (1)
  - Weight decreased [Unknown]
